FAERS Safety Report 9575739 (Version 1)
Quarter: 2013Q4

REPORT INFORMATION
  Report Type: Spontaneous
  Country: US (occurrence: US)
  Receive Date: 20131001
  Receipt Date: 20131001
  Transmission Date: 20140711
  Serious: No
  Sender: FDA-Public Use
  Company Number: US-AMGEN-USASP2012053870

PATIENT
  Age: 54 Year
  Sex: Female
  Weight: 63.49 kg

DRUGS (9)
  1. PROCRIT [Suspect]
     Indication: HAEMOGLOBIN ABNORMAL
     Dosage: UNK
     Route: 058
     Dates: start: 20120628, end: 20120705
  2. EFFEXOR [Concomitant]
     Dosage: UNK
     Dates: start: 2011
  3. ATIVAN [Concomitant]
     Indication: ANXIETY
     Dosage: 1 MG, BID
     Dates: start: 20120314
  4. ATIVAN [Concomitant]
     Indication: NAUSEA
  5. MAGNESIUM [Concomitant]
     Dosage: 1000 MG, BID
     Dates: start: 201204
  6. VICODIN [Concomitant]
     Indication: PAIN
     Dosage: 500 MG, PRN
     Dates: start: 20120314
  7. DECADRON                           /00016001/ [Concomitant]
     Indication: NAUSEA
     Dosage: 4 MG, AFTER CHEMO
     Dates: start: 201204
  8. REQUIP [Concomitant]
     Indication: RESTLESS LEGS SYNDROME
     Dosage: 2 MG, QD
     Route: 048
  9. TYLENOL                            /00020001/ [Concomitant]
     Dosage: UNK

REACTIONS (1)
  - Haemoglobin decreased [Not Recovered/Not Resolved]
